FAERS Safety Report 5882083-5 (Version None)
Quarter: 2008Q3

REPORT INFORMATION
  Report Type: 
  Country: None (occurrence: None)
  Receive Date: 20080912
  Receipt Date: 20080811
  Transmission Date: 20090109
  Serious: No
  Sender: FDA-Public Use
  Company Number: US-ABBOTT-08P-163-0465255-00

PATIENT
  Sex: Female
  Weight: 86.26 kg

DRUGS (23)
  1. HUMIRA [Suspect]
     Indication: RHEUMATOID ARTHRITIS
     Route: 058
     Dates: start: 20080301
  2. FUROSEMIDE [Suspect]
     Indication: ABDOMINAL DISTENSION
     Route: 048
     Dates: start: 20080101, end: 20080701
  3. POTASSIUM CHLORIDE [Concomitant]
     Indication: ELECTROLYTE SUBSTITUTION THERAPY
     Route: 048
     Dates: start: 20080101
  4. PREDNISONE TAB [Concomitant]
     Indication: RHEUMATOID ARTHRITIS
     Route: 048
  5. LEVOTHYROXINE SODIUM [Concomitant]
     Indication: DRUG USE FOR UNKNOWN INDICATION
     Route: 048
  6. ESOMEPRAZOLE MAGNESIUM [Concomitant]
     Indication: DRUG USE FOR UNKNOWN INDICATION
     Route: 048
  7. PANCREATIN TRIPLE STRENGTH CAP [Concomitant]
     Indication: DYSPEPSIA
     Route: 048
  8. PANCREATIN TRIPLE STRENGTH CAP [Concomitant]
     Indication: DRUG USE FOR UNKNOWN INDICATION
     Route: 048
  9. GABAPENTIN [Concomitant]
     Indication: PAIN
     Route: 048
  10. CADIAN [Concomitant]
     Indication: DRUG USE FOR UNKNOWN INDICATION
     Dosage: ONE TO TWO DAILY
     Route: 048
  11. ESTROPIPATE [Concomitant]
     Indication: DRUG USE FOR UNKNOWN INDICATION
     Route: 048
  12. ZYRTEC-D 12 HOUR [Concomitant]
     Indication: DRUG USE FOR UNKNOWN INDICATION
     Route: 048
  13. ZANTEC [Concomitant]
     Indication: DRUG USE FOR UNKNOWN INDICATION
     Dosage: 1-4 TIMES A DAY
     Route: 048
  14. THOMAPYRIN N [Concomitant]
     Indication: MIGRAINE
     Route: 048
  15. OXYCODONE HCL [Concomitant]
     Indication: PAIN
     Route: 048
  16. CYCLOSPORINE [Concomitant]
     Indication: KERATOCONJUNCTIVITIS SICCA
     Route: 047
  17. ATORVASTATIN CALCIUM [Concomitant]
     Indication: BLOOD CHOLESTEROL INCREASED
     Route: 048
  18. ALLOPURINOL [Concomitant]
     Indication: DRUG USE FOR UNKNOWN INDICATION
     Route: 048
  19. PHENERGAN HCL [Concomitant]
     Indication: NAUSEA
     Route: 048
  20. DICYCLOMINE HCL [Concomitant]
     Indication: DRUG USE FOR UNKNOWN INDICATION
     Route: 048
  21. MECLIZINE [Concomitant]
     Indication: DIZZINESS
     Route: 048
  22. VITAMIN TAB [Concomitant]
     Indication: ROUTINE HEALTH MAINTENANCE
     Route: 048
  23. MAGNESIUM SULFATE [Concomitant]
     Indication: DRUG USE FOR UNKNOWN INDICATION
     Route: 048

REACTIONS (4)
  - DYSURIA [None]
  - EYE DISORDER [None]
  - EYELID DISORDER [None]
  - WEIGHT INCREASED [None]
